FAERS Safety Report 6696194-8 (Version None)
Quarter: 2010Q2

REPORT INFORMATION
  Report Type: 
  Country: None (occurrence: None)
  Receive Date: 20100426
  Receipt Date: 20100414
  Transmission Date: 20101027
  Serious: Yes (Hospitalization)
  Sender: FDA-Public Use
  Company Number: DE-AMGEN-US393188

PATIENT
  Age: 71 Year
  Sex: Female

DRUGS (3)
  1. ENBREL [Suspect]
     Indication: ANKYLOSING SPONDYLITIS
     Route: 058
     Dates: start: 20100118
  2. NITROGLYCERIN [Concomitant]
     Dosage: 2 SPRAYS IF NEEDED
     Route: 060
  3. FENTANYL [Concomitant]
     Route: 062

REACTIONS (1)
  - ANGINA PECTORIS [None]
